FAERS Safety Report 18290911 (Version 1)
Quarter: 2020Q3

REPORT INFORMATION
  Report Type: Spontaneous
  Country: US (occurrence: US)
  Receive Date: 20200921
  Receipt Date: 20200921
  Transmission Date: 20201103
  Serious: No
  Sender: FDA-Public Use
  Company Number: US-MAYNE PHARMA-2019MYN000779

PATIENT

DRUGS (1)
  1. LOW?OGESTREL [Suspect]
     Active Substance: ETHINYL ESTRADIOL\NORGESTREL
     Indication: ENDOMETRIOSIS
     Dosage: UNK UNK, QD

REACTIONS (2)
  - Fatigue [Unknown]
  - Arthritis [Unknown]
